FAERS Safety Report 6484542-3 (Version None)
Quarter: 2009Q4

REPORT INFORMATION
  Report Type: 
  Country: None (occurrence: None)
  Receive Date: 20091209
  Receipt Date: 20091204
  Transmission Date: 20100525
  Serious: Yes (Life-Threatening, Hospitalization, Disabling)
  Sender: FDA-Public Use
  Company Number: PHEH2009US17283

PATIENT
  Age: 40 Year
  Sex: Female

DRUGS (1)
  1. TEKTURNA HCT [Suspect]
     Indication: HYPERTENSION
     Dosage: 300/12.5 MG, UNK
     Route: 048
     Dates: start: 20090201, end: 20091202

REACTIONS (1)
  - OBSTRUCTIVE AIRWAYS DISORDER [None]
